FAERS Safety Report 11616611 (Version 1)
Quarter: 2015Q4

REPORT INFORMATION
  Report Type: Spontaneous
  Country: US (occurrence: US)
  Receive Date: 20151009
  Receipt Date: 20151009
  Transmission Date: 20160304
  Serious: Yes (Hospitalization)
  Sender: FDA-Public Use
  Company Number: US-TEVA-599043USA

PATIENT
  Age: 70 Year
  Sex: Female
  Weight: 61 kg

DRUGS (7)
  1. NORCO [Suspect]
     Active Substance: ACETAMINOPHEN\HYDROCODONE BITARTRATE
     Indication: PROCEDURAL PAIN
     Dosage: 10MG/325MG
     Route: 065
     Dates: start: 2015, end: 2015
  2. VITAMINS [Concomitant]
     Active Substance: VITAMINS
  3. CELECOXIB. [Suspect]
     Active Substance: CELECOXIB
     Indication: ARTHRITIS
     Dosage: 200 MILLIGRAM DAILY;
     Route: 065
     Dates: start: 201412
  4. CELEBREX [Suspect]
     Active Substance: CELECOXIB
     Route: 065
     Dates: end: 201412
  5. VALIUM [Concomitant]
     Active Substance: DIAZEPAM
  6. MELATONIN [Concomitant]
     Active Substance: MELATONIN
  7. EQUATE ARTHRITIS PAIN [Suspect]
     Active Substance: ACETAMINOPHEN
     Route: 065

REACTIONS (8)
  - Dysuria [Unknown]
  - Arthritis [Unknown]
  - Drug dose omission [Unknown]
  - Shoulder arthroplasty [Unknown]
  - Product substitution issue [Unknown]
  - Incorrect product storage [Unknown]
  - Drug ineffective [Unknown]
  - Intentional product misuse [Unknown]

NARRATIVE: CASE EVENT DATE: 20150213
